FAERS Safety Report 16014518 (Version 1)
Quarter: 2019Q1

REPORT INFORMATION
  Report Type: Spontaneous
  Country: ZA (occurrence: ZA)
  Receive Date: 20190227
  Receipt Date: 20190227
  Transmission Date: 20190418
  Serious: Yes (Life-Threatening, Other)
  Sender: FDA-Public Use
  Company Number: ZA-NOVOPROD-647219

PATIENT
  Age: 63 Year
  Sex: Male

DRUGS (3)
  1. GLUCOPHAGE [Concomitant]
     Active Substance: METFORMIN HYDROCHLORIDE
  2. TRESIBA [Suspect]
     Active Substance: INSULIN DEGLUDEC
     Indication: TYPE 2 DIABETES MELLITUS
     Dosage: 18 IU, SINGLE
     Route: 058
     Dates: start: 20180821
  3. FORMINAL [Concomitant]

REACTIONS (3)
  - Liver disorder [Unknown]
  - Gamma-glutamyltransferase increased [Unknown]
  - Decreased appetite [Unknown]
